FAERS Safety Report 5002177-6 (Version None)
Quarter: 2006Q2

REPORT INFORMATION
  Report Type: 
  Country: None (occurrence: None)
  Receive Date: 20060510
  Receipt Date: 20060424
  Transmission Date: 20061013
  Serious: Yes (Other)
  Sender: FDA-Public Use
  Company Number: TRP_0764_2006

PATIENT
  Age: 35 Year
  Sex: Female
  Weight: 65.318 kg

DRUGS (2)
  1. RIBASPHERE [Suspect]
     Indication: HEPATITIS C
     Dosage: VAR BID PO
     Route: 048
     Dates: start: 20051228
  2. PEG-INTRON [Suspect]
     Indication: HEPATITIS C
     Dosage: 0 ML QWK SC
     Route: 058
     Dates: start: 20051228

REACTIONS (5)
  - DIARRHOEA HAEMORRHAGIC [None]
  - PHARYNGOLARYNGEAL PAIN [None]
  - PYREXIA [None]
  - VOMITING [None]
  - WEIGHT DECREASED [None]
